FAERS Safety Report 4268789-2 (Version None)
Quarter: 2004Q1

REPORT INFORMATION
  Report Type: 
  Country: None (occurrence: None)
  Receive Date: 20040108
  Receipt Date: 20031223
  Transmission Date: 20041129
  Serious: Yes (Hospitalization, Other)
  Sender: FDA-Public Use
  Company Number: 2003114958

PATIENT
  Age: 75 Year
  Sex: Male
  Weight: 108.8633 kg

DRUGS (7)
  1. LIPITOR [Suspect]
     Indication: BLOOD CHOLESTEROL INCREASED
     Dosage: 10 MG (DAILY), ORAL
     Route: 048
     Dates: start: 20030423
  2. ARICEPT [Suspect]
     Indication: AMNESIA
     Dosage: 10 MG (DAILY), ORAL
     Route: 048
     Dates: start: 20030826
  3. NICOTINIC ACID [Concomitant]
     Indication: HIGH DENSITY LIPOPROTEIN
     Dates: start: 20030701, end: 20030101
  4. WARFARIN SODIUM [Concomitant]
  5. ACETYLSALICYLIC ACID SRT [Concomitant]
  6. COLCHICINE (COLCHICINE) [Concomitant]
  7. AMLODIPINE BESYLATE [Concomitant]

REACTIONS (13)
  - ALOPECIA [None]
  - APHASIA [None]
  - ATRIAL FIBRILLATION [None]
  - CEREBROVASCULAR ACCIDENT [None]
  - DEMENTIA [None]
  - DRUG INEFFECTIVE [None]
  - DRUG LEVEL DECREASED [None]
  - HEADACHE [None]
  - HEARING IMPAIRED [None]
  - HIGH DENSITY LIPOPROTEIN DECREASED [None]
  - MYALGIA [None]
  - POLLAKIURIA [None]
  - TRANSIENT ISCHAEMIC ATTACK [None]
